FAERS Safety Report 7803182-4 (Version None)
Quarter: 2011Q4

REPORT INFORMATION
  Report Type: 
  Country: None (occurrence: None)
  Receive Date: 20111007
  Receipt Date: 20110929
  Transmission Date: 20120403
  Serious: Yes (Hospitalization)
  Sender: FDA-Public Use
  Company Number: JP-CELGENEUS-087-21880-11030995

PATIENT
  Age: 67 Year
  Sex: Male

DRUGS (8)
  1. REVLIMID [Suspect]
     Indication: REFRACTORY CANCER
  2. LENADEX [Suspect]
     Indication: MULTIPLE MYELOMA
     Dosage: 20 MILLIGRAM
     Route: 048
     Dates: start: 20110222, end: 20110222
  3. WARFARIN SODIUM [Concomitant]
     Indication: PROPHYLAXIS
     Dosage: 2 MILLIGRAM
     Route: 048
     Dates: start: 20110219, end: 20110302
  4. LENADEX [Suspect]
     Indication: REFRACTORY CANCER
  5. RABEPRAZOLE SODIUM [Concomitant]
     Indication: PROPHYLAXIS
     Dosage: 20 MILLIGRAM
     Route: 048
     Dates: start: 20110219, end: 20110302
  6. REVLIMID [Suspect]
     Indication: MULTIPLE MYELOMA
     Dosage: 10 MILLIGRAM
     Route: 048
     Dates: start: 20110222, end: 20110302
  7. NORVASC [Concomitant]
     Indication: HYPERTENSION
     Dosage: 5 MILLIGRAM
     Route: 048
     Dates: start: 20110219, end: 20110302
  8. CELECOXIB [Concomitant]
     Dosage: 200 MILLIGRAM
     Route: 048
     Dates: start: 20110219, end: 20110302

REACTIONS (2)
  - RASH [None]
  - HEPATITIS [None]
